APPROVED DRUG PRODUCT: NAFTIN
Active Ingredient: NAFTIFINE HYDROCHLORIDE
Strength: 1% **Federal Register determination that product was not discontinued or withdrawn for safety or effectiveness reasons**
Dosage Form/Route: CREAM;TOPICAL
Application: N019599 | Product #001
Applicant: LEGACY PHARMA INC
Approved: Feb 29, 1988 | RLD: Yes | RS: No | Type: DISCN